FAERS Safety Report 10308781 (Version 1)
Quarter: 2014Q3

REPORT INFORMATION
  Report Type: Spontaneous
  Country: FR (occurrence: None)
  Receive Date: 20140714
  Receipt Date: 20140714
  Transmission Date: 20150326
  Serious: Yes (Other)
  Sender: FDA-Public Use
  Company Number: 2014FR0302

PATIENT
  Age: 75 Year
  Sex: Male

DRUGS (3)
  1. CORTANCYL (PREDNISONE (PREDNISONE) [Concomitant]
  2. KINERET [Suspect]
     Active Substance: ANAKINRA
     Indication: RHEUMATOID ARTHRITIS
     Route: 058
     Dates: start: 2001
  3. METHOTREXATE (METHOTREXATE) (METHOTREXATE) [Concomitant]
     Active Substance: METHOTREXATE

REACTIONS (1)
  - Basal cell carcinoma [None]

NARRATIVE: CASE EVENT DATE: 2009
